FAERS Safety Report 7294975-3 (Version None)
Quarter: 2011Q1

REPORT INFORMATION
  Report Type: 
  Country: None (occurrence: None)
  Receive Date: 20110216
  Receipt Date: 20110209
  Transmission Date: 20110831
  Serious: Yes (Death, Other)
  Sender: FDA-Public Use
  Company Number: US-ELI_LILLY_AND_COMPANY-US201008000993

PATIENT
  Sex: Female

DRUGS (9)
  1. KEPPRA [Concomitant]
     Dosage: UNK, DAILY (1/D)
     Route: 065
  2. ATENOLOL [Concomitant]
     Dosage: 25 MG, DAILY (1/D)
     Route: 065
  3. DUONEB [Concomitant]
     Dosage: UNK, DAILY (1/D)
     Route: 065
  4. FORTEO [Suspect]
     Indication: OSTEOPOROSIS
     Dosage: 20 UG, DAILY (1/D)
     Route: 058
     Dates: start: 20081101, end: 20101001
  5. REMERON [Concomitant]
     Dosage: UNK, DAILY (1/D)
  6. ASACOL [Concomitant]
     Dosage: UNK, DAILY (1/D)
     Route: 065
  7. PEPCID [Concomitant]
     Dosage: UNK, DAILY (1/D)
     Route: 065
  8. FORTEO [Suspect]
     Dosage: 20 UG, DAILY (1/D)
     Route: 058
  9. ANTIDEPRESSANTS [Concomitant]
     Dosage: UNK, UNKNOWN

REACTIONS (4)
  - EMPHYSEMA [None]
  - GENERAL PHYSICAL HEALTH DETERIORATION [None]
  - LUNG DISORDER [None]
  - WEIGHT INCREASED [None]
